FAERS Safety Report 6475537-4 (Version None)
Quarter: 2009Q4

REPORT INFORMATION
  Report Type: 
  Country: None (occurrence: None)
  Receive Date: 20091204
  Receipt Date: 20091130
  Transmission Date: 20100525
  Serious: Yes (Hospitalization, Other)
  Sender: FDA-Public Use
  Company Number: FR-ROCHE-671821

PATIENT
  Age: 19 Year
  Sex: Male

DRUGS (7)
  1. VALGANCICLOVIR HCL [Suspect]
     Route: 065
  2. VALGANCICLOVIR HCL [Suspect]
     Route: 065
  3. MYCOPHENOLATE MOFETIL [Suspect]
     Route: 065
  4. MYCOPHENOLATE MOFETIL [Suspect]
     Route: 065
  5. DACLIZUMAB [Suspect]
     Dosage: AS INDUCTION THERAPY
     Route: 065
  6. CYCLOSPORINE [Suspect]
     Indication: IMMUNOSUPPRESSION
     Route: 065
  7. TACROLIMUS [Suspect]
     Indication: IMMUNOSUPPRESSION
     Route: 065

REACTIONS (5)
  - ABDOMINAL PAIN UPPER [None]
  - BODY TEMPERATURE INCREASED [None]
  - CYTOMEGALOVIRUS INFECTION [None]
  - PANCYTOPENIA [None]
  - TONSILLAR ULCER [None]
